FAERS Safety Report 7470640-4 (Version None)
Quarter: 2011Q2

REPORT INFORMATION
  Report Type: 
  Country: None (occurrence: None)
  Receive Date: 20110510
  Receipt Date: 20110406
  Transmission Date: 20111010
  Serious: No
  Sender: FDA-Public Use
  Company Number: US-BAYER-2011-031917

PATIENT
  Age: 56 Year
  Sex: Male
  Weight: 86 kg

DRUGS (10)
  1. KLOR-CON [Concomitant]
  2. XANAX [Concomitant]
  3. SERTRALINE [Concomitant]
  4. LISINOPRIL [Concomitant]
  5. METOPROLOL SUCCINATE [Concomitant]
  6. PLAVIX [Concomitant]
  7. ALEVE (CAPLET) [Suspect]
     Indication: BACK PAIN
     Dosage: UNK, BOTTLE COUNT 100S
     Route: 048
     Dates: start: 20110405
  8. WARFARIN [Concomitant]
  9. NITROGLYCERIN [Concomitant]
  10. ROXICODONE [Concomitant]

REACTIONS (2)
  - BLOOD URINE PRESENT [None]
  - ABDOMINAL PAIN LOWER [None]
